FAERS Safety Report 5693076-5 (Version None)
Quarter: 2008Q2

REPORT INFORMATION
  Report Type: 
  Country: None (occurrence: None)
  Receive Date: 20080402
  Receipt Date: 20080402
  Transmission Date: 20081010
  Serious: Yes (Other)
  Sender: FDA-Public Use
  Company Number: None

PATIENT
  Age: 85 Year
  Sex: Female
  Weight: 79.3795 kg

DRUGS (3)
  1. BUTORPHANOL TARTRATE [Suspect]
     Indication: RASH
     Dosage: 1 SPRAY AT BEDTIME
     Dates: start: 20080227
  2. BUTORPHANOL TARTRATE [Suspect]
     Indication: RASH
     Dosage: 1 SPRAY AT BEDTIME
     Dates: start: 20080228
  3. BUTORPHANOL TARTRATE [Suspect]
     Indication: RASH
     Dosage: 1 SPRAY AT BEDTIME
     Dates: start: 20080229

REACTIONS (3)
  - FEAR [None]
  - HALLUCINATION [None]
  - TREMOR [None]
